FAERS Safety Report 8468786 (Version 3)
Quarter: 2012Q4

REPORT INFORMATION
  Report Type: 
  Country: US (occurrence: US)
  Receive Date: 20120321
  Receipt Date: 20121009
  Transmission Date: 20130627
  Serious: Yes (Hospitalization, Other)
  Sender: FDA-Public Use
  Company Number: US-ASTRAZENECA-2011SE32270

PATIENT
  Age: 43 Year
  Sex: Female

DRUGS (15)
  1. NEXIUM [Suspect]
     Indication: GASTROOESOPHAGEAL REFLUX DISEASE
     Route: 048
     Dates: start: 2003
  2. PEPTO BISMOL [Concomitant]
  3. ROLAIDS [Concomitant]
  4. LISINOPRIL [Concomitant]
  5. CLENIDINE [Concomitant]
  6. CARVEDILOL [Concomitant]
  7. LASIX [Concomitant]
  8. METFORMIN [Concomitant]
  9. ADVIL [Concomitant]
  10. HYDROCODONE [Concomitant]
  11. CRESTOR [Concomitant]
  12. ZOCOR [Concomitant]
  13. XANAX [Concomitant]
  14. LOVAZA [Concomitant]
  15. AMBIEN [Concomitant]

REACTIONS (9)
  - Exposure during pregnancy [Unknown]
  - Infection [Unknown]
  - Ankle fracture [Unknown]
  - Abortion spontaneous [Unknown]
  - Osteoporosis [Unknown]
  - Chest pain [Unknown]
  - Arthritis [Unknown]
  - Bone disorder [Unknown]
  - Insomnia [Unknown]
